FAERS Safety Report 4467526-6 (Version None)
Quarter: 2004Q4

REPORT INFORMATION
  Report Type: 
  Country: None (occurrence: None)
  Receive Date: 20041004
  Receipt Date: 20040927
  Transmission Date: 20050328
  Serious: Yes (Hospitalization, Other)
  Sender: FDA-Public Use
  Company Number: KII-2004-0013466

PATIENT
  Age: 51 Year
  Sex: Female

DRUGS (10)
  1. OXYCODONE HCL [Suspect]
     Dosage: ORAL
     Route: 048
  2. ACETAMINOPHEN (ACETAMOL) [Suspect]
  3. SSRI [Suspect]
     Dosage: ORAL
     Route: 048
  4. PROPHYPHENE NAPSYLATE W/ACETAMINOPHEN (DEXTROPROPOXYPHENE NAPSILATE) [Concomitant]
  5. ANTIEPILEPTICS [Suspect]
     Dosage: ORAL
     Route: 048
  6. BENZODIAZEPINE DERIVATIVES [Suspect]
     Dosage: ORAL
     Route: 048
  7. AMITRIPTYLINE HCL [Suspect]
     Dosage: ORAL
     Route: 048
  8. PROTON PUMP INHIBITOR [Suspect]
     Dosage: ORAL
     Route: 048
  9. ANTIVIRALS FOR SYSTEMIC USE [Suspect]
     Dosage: ORAL
     Route: 048
  10. MUSCLE RELAXANTS [Suspect]
     Dosage: ORAL
     Route: 048

REACTIONS (11)
  - AGITATION [None]
  - DRUG TOLERANCE [None]
  - DRUG TOXICITY [None]
  - DRUG WITHDRAWAL SYNDROME [None]
  - ELECTROCARDIOGRAM ST-T SEGMENT ABNORMAL [None]
  - HOARSENESS [None]
  - MULTIPLE DRUG OVERDOSE [None]
  - OXYGEN SATURATION DECREASED [None]
  - SCREAMING [None]
  - SINUS TACHYCARDIA [None]
  - THERAPEUTIC RESPONSE DECREASED [None]
